FAERS Safety Report 6511714-1 (Version None)
Quarter: 2009Q4

REPORT INFORMATION
  Report Type: 
  Country: None (occurrence: None)
  Receive Date: 20091222
  Receipt Date: 20090410
  Transmission Date: 20100525
  Serious: No
  Sender: FDA-Public Use
  Company Number: US-ASTRAZENECA-2009UW09156

PATIENT
  Age: 58 Year
  Sex: Female
  Weight: 96.2 kg

DRUGS (5)
  1. CRESTOR [Suspect]
     Indication: BLOOD CHOLESTEROL
     Route: 048
  2. NIASPAN [Suspect]
     Indication: BLOOD CHOLESTEROL
     Dates: start: 20080103, end: 20090105
  3. NIASPAN [Suspect]
     Dates: start: 20090105, end: 20090210
  4. NYSTATIN [Suspect]
  5. ZOCOR [Suspect]

REACTIONS (4)
  - DIARRHOEA [None]
  - FLUSHING [None]
  - MYALGIA [None]
  - OEDEMA PERIPHERAL [None]
